FAERS Safety Report 12932884 (Version 1)
Quarter: 2016Q4

REPORT INFORMATION
  Report Type: Spontaneous
  Country: ES (occurrence: ES)
  Receive Date: 20161111
  Receipt Date: 20161111
  Transmission Date: 20170207
  Serious: Yes (Other)
  Sender: FDA-Public Use
  Company Number: ES-BAYER-2016-212286

PATIENT
  Age: 66 Year
  Sex: Female

DRUGS (2)
  1. ACETYLSALICYLIC ACID({=100 MG) [Suspect]
     Active Substance: ASPIRIN
     Indication: EMBOLIC STROKE
  2. WARFARIN [Concomitant]
     Active Substance: WARFARIN
     Indication: EMBOLIC STROKE

REACTIONS (2)
  - Embolic stroke [None]
  - Drug ineffective [None]
